FAERS Safety Report 8847159 (Version 1)
Quarter: 2012Q4

REPORT INFORMATION
  Report Type: Spontaneous
  Country: US (occurrence: None)
  Receive Date: 20121016
  Receipt Date: 20121016
  Transmission Date: 20130627
  Serious: Yes (Death)
  Sender: FDA-Public Use
  Company Number: EUS-2012-00804

PATIENT
  Age: 69 Year
  Sex: Male

DRUGS (1)
  1. QUADRAMET [Suspect]
     Indication: PROSTATE CANCER
     Route: 042

REACTIONS (1)
  - Thrombocytopenia [None]
